FAERS Safety Report 7895438-4 (Version None)
Quarter: 2011Q4

REPORT INFORMATION
  Report Type: 
  Country: None (occurrence: None)
  Receive Date: 20111106
  Receipt Date: 20110826
  Transmission Date: 20120403
  Serious: No
  Sender: FDA-Public Use
  Company Number: US-AMGEN-USASP2011040647

PATIENT
  Age: 50 Year
  Sex: Female
  Weight: 75.737 kg

DRUGS (3)
  1. ENBREL [Suspect]
     Indication: RHEUMATOID ARTHRITIS
     Dosage: 25 MG, QWK
     Route: 058
     Dates: start: 20110701
  2. ALEVE [Concomitant]
     Dosage: 220 UNK, BID
     Route: 048
  3. METHIMAZOLE [Concomitant]
     Indication: HYPERTHYROIDISM
     Dosage: 5 UNK, QD
     Route: 048
     Dates: start: 20110701

REACTIONS (1)
  - INJECTION SITE PAIN [None]
